FAERS Safety Report 4574999-7 (Version None)
Quarter: 2005Q1

REPORT INFORMATION
  Report Type: 
  Country: None (occurrence: None)
  Receive Date: 20050208
  Receipt Date: 20050113
  Transmission Date: 20050727
  Serious: Yes (Hospitalization)
  Sender: FDA-Public Use
  Company Number: US-ROCHE-392395

PATIENT
  Age: 51 Year
  Sex: Male

DRUGS (4)
  1. PEG-INTERFERON ALFA 2A (RO 25-8310) [Suspect]
     Route: 058
     Dates: start: 20041008, end: 20050107
  2. VIRAMIDINE [Suspect]
     Route: 048
     Dates: start: 20041008, end: 20050107
  3. TRAZODONE HCL [Concomitant]
     Dates: start: 20040715
  4. PREDNISONE [Concomitant]
     Dates: start: 20041229

REACTIONS (2)
  - ERYTHEMA MULTIFORME [None]
  - STEVENS-JOHNSON SYNDROME [None]
